FAERS Safety Report 9129518 (Version 3)
Quarter: 2013Q2

REPORT INFORMATION
  Report Type: Report from Study
  Country: FR (occurrence: FR)
  Receive Date: 20130125
  Receipt Date: 20130411
  Transmission Date: 20140414
  Serious: Yes (Hospitalization)
  Sender: FDA-Public Use
  Company Number: FR-UCBSA-076402

PATIENT
  Age: 59 Year
  Sex: Female
  Weight: 56 kg

DRUGS (8)
  1. CIMZIA [Suspect]
     Indication: RHEUMATOID ARTHRITIS
     Route: 058
     Dates: start: 20120912, end: 201210
  2. CIMZIA [Suspect]
     Indication: RHEUMATOID ARTHRITIS
     Route: 058
     Dates: start: 201210, end: 20121024
  3. FOLIC ACID [Concomitant]
     Indication: RHEUMATOID ARTHRITIS
  4. METOJECT [Concomitant]
     Indication: RHEUMATOID ARTHRITIS
     Route: 058
     Dates: start: 20120426
  5. FLECAINE [Concomitant]
     Indication: ARRHYTHMIA
     Dosage: DAILY DOSE: 200 MG
  6. CARDENSIEL [Concomitant]
     Indication: ARRHYTHMIA
     Dosage: DAILY DOSE: 125 MG
  7. CALCIDOSE [Concomitant]
     Indication: OSTEOPOROSIS
     Dosage: 1 TABLET DAILY
  8. ACLASTA [Concomitant]
     Indication: OSTEOPOROSIS
     Dosage: ONE INJECTION
     Dates: start: 20120912

REACTIONS (1)
  - Pyelonephritis acute [Recovered/Resolved]
